FAERS Safety Report 13017954 (Version 1)
Quarter: 2016Q4

REPORT INFORMATION
  Report Type: Report from Study
  Country: US (occurrence: US)
  Receive Date: 20161212
  Receipt Date: 20161212
  Transmission Date: 20170207
  Serious: No
  Sender: FDA-Public Use
  Company Number: US-JNJFOC-20161206605

PATIENT
  Age: 75 Year
  Sex: Male
  Weight: 88.45 kg

DRUGS (10)
  1. TAMULOSIN [Concomitant]
     Active Substance: TAMSULOSIN
     Route: 065
  2. REMICADE [Suspect]
     Active Substance: INFLIXIMAB
     Indication: PYODERMA GANGRENOSUM
     Route: 042
     Dates: start: 20161121
  3. PREDNISONE. [Concomitant]
     Active Substance: PREDNISONE
     Route: 065
  4. HYDROCHLOROTHIAZIDE. [Concomitant]
     Active Substance: HYDROCHLOROTHIAZIDE
     Route: 065
  5. ATORVASTATIN [Concomitant]
     Active Substance: ATORVASTATIN
     Route: 065
  6. BABY ASPIRIN [Concomitant]
     Active Substance: ASPIRIN
     Route: 065
  7. TOPROL XL [Concomitant]
     Active Substance: METOPROLOL SUCCINATE
     Route: 065
  8. REMICADE [Suspect]
     Active Substance: INFLIXIMAB
     Indication: PYODERMA GANGRENOSUM
     Route: 042
     Dates: start: 201503, end: 201509
  9. GABAPENTIN. [Concomitant]
     Active Substance: GABAPENTIN
     Route: 065
  10. RANEXA [Concomitant]
     Active Substance: RANOLAZINE
     Route: 065

REACTIONS (3)
  - Product use issue [Unknown]
  - Pyoderma gangrenosum [Unknown]
  - Off label use [Unknown]

NARRATIVE: CASE EVENT DATE: 201503
